FAERS Safety Report 10198443 (Version 1)
Quarter: 2014Q2

REPORT INFORMATION
  Report Type: Spontaneous
  Country: US (occurrence: None)
  Receive Date: 20140523
  Receipt Date: 20140523
  Transmission Date: 20141212
  Serious: No
  Sender: FDA-Public Use
  Company Number: None

PATIENT
  Age: 76 Year
  Sex: Female
  Weight: 72.58 kg

DRUGS (11)
  1. ESCITALOPRAM [Suspect]
     Indication: ANXIETY
     Route: 048
     Dates: start: 20140512, end: 20140513
  2. ESCITALOPRAM [Suspect]
     Indication: DEPRESSION
     Route: 048
     Dates: start: 20140512, end: 20140513
  3. VITAMIN B3 [Concomitant]
  4. RED YEAST RICE [Concomitant]
  5. MULTIVITAMIN [Concomitant]
  6. AROMASIN (EXEMESTANE) [Concomitant]
  7. PRILOSEC (OMEPRAZOLE) [Concomitant]
  8. MOBIC [Concomitant]
  9. TRAMADOL (ULTRAM) [Concomitant]
  10. METAXALONE (SKELAXIN) [Concomitant]
  11. VITAMIN D3-1000 [Concomitant]

REACTIONS (8)
  - Muscle spasms [None]
  - Pain [None]
  - Ear pain [None]
  - Nausea [None]
  - Ligament pain [None]
  - Headache [None]
  - Arthritis [None]
  - Myalgia [None]
